FAERS Safety Report 18549080 (Version 2)
Quarter: 2020Q4

REPORT INFORMATION
  Report Type: Spontaneous
  Country: JP (occurrence: JP)
  Receive Date: 20201126
  Receipt Date: 20201210
  Transmission Date: 20210114
  Serious: Yes (Life-Threatening, Hospitalization)
  Sender: FDA-Public Use
  Company Number: JP-HBP-2020JP021312

PATIENT
  Sex: Female

DRUGS (2)
  1. DEXART [Concomitant]
     Active Substance: DEXAMETHASONE SODIUM PHOSPHATE
     Indication: SUPPORTIVE CARE
     Dosage: 6.6 MILLIGRAM, QD
     Route: 042
     Dates: start: 20201114
  2. ALOXI [Suspect]
     Active Substance: PALONOSETRON HYDROCHLORIDE
     Indication: SUPPORTIVE CARE
     Dosage: 0.75 MILLIGRAM, QD
     Route: 042
     Dates: start: 20201114

REACTIONS (2)
  - Shock [Recovering/Resolving]
  - Electrocardiogram QT prolonged [Unknown]

NARRATIVE: CASE EVENT DATE: 20201114
